FAERS Safety Report 24749304 (Version 1)
Quarter: 2024Q4

REPORT INFORMATION
  Report Type: Spontaneous
  Country: CN (occurrence: CN)
  Receive Date: 20241218
  Receipt Date: 20241218
  Transmission Date: 20250114
  Serious: Yes (Hospitalization)
  Sender: ROCHE
  Company Number: CN-BoehringerIngelheim-2024-BI-067964

PATIENT
  Age: 6 Month
  Sex: Male
  Weight: 7.0 kg

DRUGS (1)
  1. ALTEPLASE [Suspect]
     Active Substance: ALTEPLASE
     Indication: Hepatic artery thrombosis
     Route: 042
     Dates: start: 20241105, end: 20241105

REACTIONS (6)
  - Thoracic haemorrhage [Not Recovered/Not Resolved]
  - Puncture site haemorrhage [Not Recovered/Not Resolved]
  - Atelectasis [Not Recovered/Not Resolved]
  - Restrictive pulmonary disease [Not Recovered/Not Resolved]
  - Off label use [Unknown]
  - Off label use [Unknown]

NARRATIVE: CASE EVENT DATE: 20241105
